FAERS Safety Report 7172480-2 (Version None)
Quarter: 2010Q4

REPORT INFORMATION
  Report Type: 
  Country: None (occurrence: None)
  Receive Date: 20101217
  Receipt Date: 20100209
  Transmission Date: 20110411
  Serious: Yes (Other)
  Sender: FDA-Public Use
  Company Number: US-AMGEN-QUU392435

PATIENT

DRUGS (7)
  1. ENBREL [Suspect]
     Indication: RHEUMATOID ARTHRITIS
     Dosage: 50 MG, QWK
     Route: 058
     Dates: start: 20030801, end: 20081101
  2. METHOTREXATE [Concomitant]
     Dosage: 12.5 MG, QWK
     Route: 048
     Dates: start: 20020101
  3. DEXTROPROPOXYPHENE NAPSILATE W/ ACETAMINOPHEN [Concomitant]
     Dosage: UNK UNK, PRN
     Route: 048
     Dates: start: 20020101
  4. LISINOPRIL [Concomitant]
     Dosage: 10 MG, QD
     Route: 048
  5. MULTIVIT [Concomitant]
     Dosage: UNK UNK, UNK
     Route: 048
  6. FOLIC ACID [Concomitant]
     Dosage: UNK UNK, UNK
     Route: 048
  7. CALCIUM [Concomitant]
     Dosage: UNK UNK, UNK
     Route: 048

REACTIONS (1)
  - SQUAMOUS CELL CARCINOMA OF THE CERVIX [None]
